FAERS Safety Report 24174143 (Version 2)
Quarter: 2024Q3

REPORT INFORMATION
  Report Type: Spontaneous
  Country: US (occurrence: US)
  Receive Date: 20240805
  Receipt Date: 20240820
  Transmission Date: 20241016
  Serious: No
  Sender: CSL BEHRING
  Company Number: US-BEH-2024176758

PATIENT
  Age: 31 Year
  Sex: Female

DRUGS (3)
  1. HIZENTRA [Suspect]
     Active Substance: HUMAN IMMUNOGLOBULIN G
     Indication: Immunodeficiency common variable
     Dosage: 23 G, QW
     Route: 058
     Dates: start: 20240731, end: 20240731
  2. HIZENTRA [Suspect]
     Active Substance: HUMAN IMMUNOGLOBULIN G
     Dosage: 23 UNK
     Route: 058
     Dates: start: 20240731, end: 20240731
  3. HIZENTRA [Suspect]
     Active Substance: HUMAN IMMUNOGLOBULIN G
     Dosage: 23 UNK
     Route: 058
     Dates: start: 20240731, end: 20240731

REACTIONS (3)
  - Infusion site erythema [Recovered/Resolved]
  - Infusion site discharge [Unknown]
  - Infusion site discharge [Unknown]

NARRATIVE: CASE EVENT DATE: 20240731
